FAERS Safety Report 8023972-5 (Version None)
Quarter: 2012Q1

REPORT INFORMATION
  Report Type: 
  Country: None (occurrence: None)
  Receive Date: 20120105
  Receipt Date: 20120103
  Transmission Date: 20120608
  Serious: Yes (Life-Threatening, Hospitalization)
  Sender: FDA-Public Use
  Company Number: AU-B.I. PHARMACEUTICALS,INC./RIDGEFIELD-2011-AU-02389AU

PATIENT
  Sex: Male

DRUGS (4)
  1. NEBIVOLOL HCL [Concomitant]
     Dosage: 1.25 MG
     Dates: start: 20110501
  2. PRADAXA [Suspect]
     Indication: ATRIAL FIBRILLATION
     Dosage: 220 MG
     Dates: start: 20110701, end: 20110810
  3. DIGOXIN [Concomitant]
     Dosage: 62.5 MCG
     Dates: start: 20110501
  4. SPIRONOLACTONE [Concomitant]
     Dosage: 25 MG
     Dates: start: 20110501

REACTIONS (4)
  - GASTROINTESTINAL HAEMORRHAGE [None]
  - MELAENA [None]
  - COLONIC POLYP [None]
  - HYPOTENSION [None]
